FAERS Safety Report 5015102-9 (Version None)
Quarter: 2006Q2

REPORT INFORMATION
  Report Type: 
  Country: None (occurrence: None)
  Receive Date: 20060425
  Receipt Date: 20050607
  Transmission Date: 20061013
  Serious: Yes (Hospitalization)
  Sender: FDA-Public Use
  Company Number: APP200500288 (0)

PATIENT
  Age: 40 Year
  Sex: Female

DRUGS (7)
  1. HEPARIN SODIUM INJECTION [Suspect]
     Indication: AORTIC VALVE REPLACEMENT
     Dosage: INTRAVENOUS
     Route: 042
     Dates: start: 20050331, end: 20050401
  2. HEPARIN SODIUM INJECTION [Suspect]
     Indication: PROPHYLAXIS
     Dosage: INTRAVENOUS
     Route: 042
     Dates: start: 20050331, end: 20050401
  3. LOVENOX [Suspect]
     Dosage: 70 MG, INJECTION
     Dates: start: 20041208
  4. ACETYLSALICYLIC ACID SRT [Concomitant]
  5. WARFARIN SODIUM [Concomitant]
  6. CITALOPRAM HYDROBROMIDE [Concomitant]
  7. AMBIEN [Concomitant]

REACTIONS (2)
  - HAEMATOCRIT ABNORMAL [None]
  - INTRA-ABDOMINAL HAEMORRHAGE [None]
